FAERS Safety Report 16821888 (Version 2)
Quarter: 2020Q4

REPORT INFORMATION
  Report Type: Report from Study
  Country: JP (occurrence: JP)
  Receive Date: 20190918
  Receipt Date: 20201120
  Transmission Date: 20210113
  Serious: Yes (Death, Life-Threatening, Other)
  Sender: FDA-Public Use
  Company Number: JP-ASTELLAS-2019JP005094

PATIENT
  Age: 85 Year
  Sex: Female
  Weight: 49 kg

DRUGS (14)
  1. ASP2215 [Suspect]
     Active Substance: GILTERITINIB
     Indication: ACUTE MYELOID LEUKAEMIA REFRACTORY
     Route: 048
     Dates: start: 20190221, end: 20190321
  2. ASP2215 [Suspect]
     Active Substance: GILTERITINIB
     Route: 048
     Dates: start: 20190424, end: 20190509
  3. ASP2215 [Suspect]
     Active Substance: GILTERITINIB
     Route: 048
     Dates: start: 20190510, end: 20190615
  4. BIOFERMIN R [Suspect]
     Active Substance: DIETARY SUPPLEMENT\PROBIOTICS
     Indication: PRODUCT USED FOR UNKNOWN INDICATION
     Dosage: UNK UNK, UNKNOWN FREQ.
     Route: 048
  5. CEFEPIME DIHYDROCHLORIDE [Concomitant]
     Active Substance: CEFEPIME HYDROCHLORIDE
     Indication: BIFIDOBACTERIUM INFECTION
     Dosage: UNK UNK, UNKNOWN FREQ.
     Route: 041
  6. ASP2215 [Suspect]
     Active Substance: GILTERITINIB
     Route: 048
     Dates: start: 20190621, end: 20190628
  7. FUROSEMIDE. [Concomitant]
     Active Substance: FUROSEMIDE
     Indication: PSEUDOALDOSTERONISM
     Dosage: UNK UNK, UNKNOWN FREQ.
     Route: 042
  8. SAMSCA [Concomitant]
     Active Substance: TOLVAPTAN
     Indication: PSEUDOALDOSTERONISM
     Dosage: UNK UNK, UNKNOWN FREQ.
     Route: 048
  9. ASP2215 [Suspect]
     Active Substance: GILTERITINIB
     Route: 048
     Dates: start: 20190629
  10. ASP2215 [Suspect]
     Active Substance: GILTERITINIB
     Route: 048
     Dates: start: 20190404, end: 20190415
  11. PREDONINE [PREDNISOLONE ACETATE] [Concomitant]
     Active Substance: PREDNISOLONE ACETATE
     Indication: RASH
     Dosage: UNK UNK, UNKNOWN FREQ.
     Route: 041
  12. MEROPENEM. [Concomitant]
     Active Substance: MEROPENEM
     Indication: ESCHERICHIA BACTERAEMIA
     Dosage: UNK UNK, UNKNOWN FREQ.
     Route: 041
  13. TEICOPLANIN [Concomitant]
     Active Substance: TEICOPLANIN
     Indication: ENTEROCOCCAL INFECTION
     Dosage: UNK UNK, UNKNOWN FREQ.
     Route: 041
  14. PREDONINE [Concomitant]
     Active Substance: PREDNISOLONE
     Indication: RASH
     Dosage: UNK UNK, UNKNOWN FREQ.
     Route: 048

REACTIONS (11)
  - Bronchopulmonary aspergillosis [Not Recovered/Not Resolved]
  - Pseudoaldosteronism [Not Recovered/Not Resolved]
  - Myelosuppression [Not Recovered/Not Resolved]
  - Escherichia bacteraemia [Recovered/Resolved]
  - Enterococcal infection [Recovered/Resolved]
  - Subdural haematoma [Not Recovered/Not Resolved]
  - Bifidobacterium infection [Recovered/Resolved]
  - Hepatic function abnormal [Not Recovered/Not Resolved]
  - Renal disorder [Not Recovered/Not Resolved]
  - Rash [Recovering/Resolving]
  - Acute myeloid leukaemia [Fatal]

NARRATIVE: CASE EVENT DATE: 20190321
